FAERS Safety Report 4587001-8 (Version None)
Quarter: 2005Q1

REPORT INFORMATION
  Report Type: 
  Country: None (occurrence: None)
  Receive Date: 20050218
  Receipt Date: 20041104
  Transmission Date: 20050727
  Serious: No
  Sender: FDA-Public Use
  Company Number: US-MERCK-0411USA00889

PATIENT
  Age: 41 Year
  Sex: Female
  Weight: 89 kg

DRUGS (7)
  1. VIOXX [Suspect]
     Indication: ARTHRITIS
     Route: 048
     Dates: start: 20040415, end: 20040528
  2. VIOXX [Suspect]
     Indication: BACK PAIN
     Route: 048
     Dates: start: 20040415, end: 20040528
  3. NORVASC [Concomitant]
     Route: 065
  4. HYDROCORTISONE [Concomitant]
     Route: 065
  5. CELEBREX [Concomitant]
     Route: 065
  6. VICODIN [Concomitant]
     Route: 065
  7. SKELAXIN [Concomitant]
     Route: 065

REACTIONS (1)
  - HAEMATEMESIS [None]
